FAERS Safety Report 7602568-0 (Version None)
Quarter: 2011Q3

REPORT INFORMATION
  Report Type: 
  Country: None (occurrence: None)
  Receive Date: 20110707
  Receipt Date: 20110525
  Transmission Date: 20111222
  Serious: Yes (Hospitalization)
  Sender: FDA-Public Use
  Company Number: US-CYPR-2011-000006

PATIENT
  Sex: Male
  Weight: 86 kg

DRUGS (11)
  1. ASPIRIN [Suspect]
     Indication: ANTIPLATELET THERAPY
     Dosage: (325 MG QD ORAL) ; (81 MG QD ORAL)
     Route: 048
     Dates: start: 20091007, end: 20110306
  2. ASPIRIN [Suspect]
     Indication: ANTIPLATELET THERAPY
     Dosage: (325 MG QD ORAL) ; (81 MG QD ORAL)
     Route: 048
     Dates: start: 20110307
  3. AZOR [Concomitant]
  4. NEURONTIN [Concomitant]
  5. CLOPIDOGREL [Suspect]
     Indication: ANTIPLATELET THERAPY
     Dosage: (75 MG QD ORAL)
     Route: 048
     Dates: start: 20101029, end: 20110309
  6. GLYBURIDE [Concomitant]
  7. METOPROLOL TARTRATE [Concomitant]
  8. CYPHER STENT [Concomitant]
  9. NOVOLOG [Concomitant]
  10. LEVEMIR [Concomitant]
  11. METFORMIN HCL [Concomitant]

REACTIONS (1)
  - ANGINA UNSTABLE [None]
